FAERS Safety Report 7450879-4 (Version None)
Quarter: 2011Q2

REPORT INFORMATION
  Report Type: 
  Country: None (occurrence: None)
  Receive Date: 20110502
  Receipt Date: 20110422
  Transmission Date: 20111010
  Serious: Yes (Other)
  Sender: FDA-Public Use
  Company Number: JP-PFIZER INC-2011088348

PATIENT
  Age: 75 Year
  Sex: Male

DRUGS (3)
  1. ARBEKACIN [Concomitant]
     Indication: STAPHYLOCOCCAL INFECTION
  2. TEICOPLANIN [Concomitant]
     Indication: STAPHYLOCOCCAL INFECTION
  3. ZYVOX [Suspect]
     Indication: STAPHYLOCOCCAL INFECTION

REACTIONS (6)
  - DRUG INEFFECTIVE [None]
  - HYPOKINESIA [None]
  - BLOOD PRESSURE DECREASED [None]
  - DEHYDRATION [None]
  - CARDIAC FAILURE [None]
  - INFECTION [None]
